FAERS Safety Report 25868618 (Version 1)
Quarter: 2025Q4

REPORT INFORMATION
  Report Type: Spontaneous
  Country: EU (occurrence: EU)
  Receive Date: 20251001
  Receipt Date: 20251001
  Transmission Date: 20260118
  Serious: Yes (Hospitalization)
  Sender: MYLAN
  Company Number: None

PATIENT
  Age: 49 Year
  Sex: Female

DRUGS (5)
  1. PAROXETINE [Suspect]
     Active Substance: PAROXETINE
     Indication: Product used for unknown indication
     Dosage: 7 DOSAGE FORM, TOTAL (7 TABLETS / TOTAL OF 20 MG EACH)
     Dates: start: 20250908, end: 20250908
  2. NORETHINDRONE ACETATE [Suspect]
     Active Substance: NORETHINDRONE ACETATE
     Indication: Product used for unknown indication
     Dosage: 14 DOSAGE FORM, TOTAL (14 TABLETS /TOTAL )
     Dates: start: 20250908, end: 20250908
  3. AMLODIPINE\INDAPAMIDE\PERINDOPRIL [Suspect]
     Active Substance: AMLODIPINE\INDAPAMIDE\PERINDOPRIL
     Indication: Product used for unknown indication
     Dosage: 1 BLISTER / TOTAL
     Dates: start: 20250908, end: 20250908
  4. DIAZEPAM [Suspect]
     Active Substance: DIAZEPAM
     Indication: Product used for unknown indication
     Dosage: 1 DOSAGE FORM (1 BOTTLE)
     Dates: start: 20250908, end: 20250908
  5. BROMAZEPAM [Suspect]
     Active Substance: BROMAZEPAM
     Indication: Product used for unknown indication
     Dosage: 1 DOSAGE FORM (1 BOTTLE)
     Dates: start: 20250908, end: 20250908

REACTIONS (3)
  - Sopor [Recovered/Resolved]
  - Cognitive disorder [Recovered/Resolved]
  - Drug abuse [Recovered/Resolved]

NARRATIVE: CASE EVENT DATE: 20250908
